FAERS Safety Report 13374628 (Version 1)
Quarter: 2017Q1

REPORT INFORMATION
  Report Type: Spontaneous
  Country: US (occurrence: US)
  Receive Date: 20170327
  Receipt Date: 20170327
  Transmission Date: 20170429
  Serious: No
  Sender: FDA-Public Use
  Company Number: US-ASTRAZENECA-2017SE28627

PATIENT
  Sex: Female

DRUGS (1)
  1. SYMBICORT [Suspect]
     Active Substance: BUDESONIDE\FORMOTEROL FUMARATE DIHYDRATE
     Route: 055

REACTIONS (6)
  - Respiration abnormal [Unknown]
  - Adverse event [Unknown]
  - Drug dose omission [Unknown]
  - Emphysema [Unknown]
  - Hypoxia [Unknown]
  - Dyspnoea exertional [Unknown]
